FAERS Safety Report 6274023-4 (Version None)
Quarter: 2009Q3

REPORT INFORMATION
  Report Type: 
  Country: None (occurrence: None)
  Receive Date: 20090720
  Receipt Date: 20090710
  Transmission Date: 20100115
  Serious: Yes (Hospitalization)
  Sender: FDA-Public Use
  Company Number: JP-ASTRAZENECA-2009SE05032

PATIENT
  Age: 62 Year
  Sex: Female

DRUGS (6)
  1. BLOPRESS [Suspect]
     Indication: HYPERTENSION
     Route: 048
     Dates: end: 20090709
  2. BLOPRESS [Suspect]
     Route: 048
     Dates: start: 20090710, end: 20090710
  3. AMARYL [Suspect]
     Route: 048
     Dates: end: 20090709
  4. AMARYL [Suspect]
     Route: 048
     Dates: start: 20090710, end: 20090710
  5. METFORMIN HCL [Suspect]
     Route: 048
     Dates: end: 20090709
  6. METFORMIN HCL [Suspect]
     Route: 048
     Dates: start: 20090710, end: 20090710

REACTIONS (2)
  - DEPRESSED LEVEL OF CONSCIOUSNESS [None]
  - INTENTIONAL OVERDOSE [None]
